APPROVED DRUG PRODUCT: ODOMZO
Active Ingredient: SONIDEGIB PHOSPHATE
Strength: EQ 200MG BASE
Dosage Form/Route: CAPSULE;ORAL
Application: N205266 | Product #001
Applicant: SUN PHARMACEUTICAL INDUSTRIES LTD
Approved: Jul 24, 2015 | RLD: Yes | RS: Yes | Type: RX

PATENTS:
Patent 8178563 | Expires: Jul 24, 2029
Patent 8063043 | Expires: Sep 15, 2029
Patent 10266523 | Expires: Mar 30, 2036